FAERS Safety Report 7276304-4 (Version None)
Quarter: 2011Q1

REPORT INFORMATION
  Report Type: 
  Country: None (occurrence: None)
  Receive Date: 20110131
  Receipt Date: 20110118
  Transmission Date: 20110831
  Serious: Yes (Hospitalization, Other)
  Sender: FDA-Public Use
  Company Number: 2010CP000250

PATIENT
  Age: 38 Year
  Sex: Male

DRUGS (1)
  1. PERFALGAN (PARACETAMOL) [Suspect]
     Indication: NASAL SEPTUM DEVIATION
     Dosage: 4 GM;IV
     Route: 042
     Dates: start: 20100215, end: 20100216

REACTIONS (2)
  - PALPITATIONS [None]
  - ARRHYTHMIA [None]
